FAERS Safety Report 9031914 (Version 3)
Quarter: 2013Q1

REPORT INFORMATION
  Report Type: Report from Study
  Country: US (occurrence: US)
  Receive Date: 20130125
  Receipt Date: 20130315
  Transmission Date: 20140127
  Serious: Yes (Other)
  Sender: FDA-Public Use
  Company Number: US-PURDUE-USA-2011-0067703

PATIENT
  Sex: Male
  Weight: 78.91 kg

DRUGS (7)
  1. OXYCONTIN (NDA 22-272) [Suspect]
     Indication: MIGRAINE
     Dosage: 40 MG, TID
     Route: 048
  2. OXYCONTIN (NDA 22-272) [Suspect]
     Indication: ARTHRALGIA
     Dosage: 160 MG, BID
     Route: 048
  3. OXYCONTIN (NDA 22-272) [Suspect]
     Indication: NECK PAIN
     Dosage: 320 MG, Q6H
  4. OXYCONTIN (NDA 22-272) [Suspect]
     Indication: MUSCULOSKELETAL PAIN
  5. OXYCONTIN (NDA 22-272) [Suspect]
     Indication: ARTHRALGIA
  6. METHADONE [Concomitant]
     Indication: BREAKTHROUGH PAIN
  7. IMITREX                            /01044801/ [Concomitant]
     Indication: PRODUCT USED FOR UNKNOWN INDICATION

REACTIONS (13)
  - Intervertebral disc degeneration [Unknown]
  - Cervical spinal stenosis [Not Recovered/Not Resolved]
  - Neck deformity [Unknown]
  - Fractured coccyx [Unknown]
  - Migraine [Not Recovered/Not Resolved]
  - Pain in extremity [Not Recovered/Not Resolved]
  - Drug effect decreased [Not Recovered/Not Resolved]
  - Memory impairment [Unknown]
  - Terminal insomnia [Unknown]
  - Peripheral coldness [Unknown]
  - Alveolar osteitis [Unknown]
  - Tooth extraction [Unknown]
  - Constipation [Unknown]
